FAERS Safety Report 9032674 (Version 1)
Quarter: 2013Q1

REPORT INFORMATION
  Report Type: Spontaneous
  Country: US (occurrence: US)
  Receive Date: 20130127
  Receipt Date: 20130127
  Transmission Date: 20140127
  Serious: No
  Sender: FDA-Public Use
  Company Number: US-ALLERGAN-1204035US

PATIENT
  Sex: Female
  Weight: 90.7 kg

DRUGS (3)
  1. PRED FORTE [Suspect]
     Indication: EYE OEDEMA
  2. THIAZIDE [Concomitant]
     Indication: HYPERTENSION
  3. LEVOXYL [Concomitant]
     Indication: THYROIDECTOMY
     Dosage: 175 UNK, UNK

REACTIONS (1)
  - Drug ineffective [Unknown]
